FAERS Safety Report 12582232 (Version 1)
Quarter: 2016Q3

REPORT INFORMATION
  Report Type: Spontaneous
  Country: US (occurrence: None)
  Receive Date: 20160721
  Receipt Date: 20160721
  Transmission Date: 20161109
  Serious: Yes (Other)
  Sender: FDA-Public Use
  Company Number: None

PATIENT
  Age: 64 Year
  Sex: Female
  Weight: 46.72 kg

DRUGS (12)
  1. PANTOPRAZOLE 40 MG CAMBER [Suspect]
     Active Substance: PANTOPRAZOLE SODIUM
     Indication: GASTRIC PH DECREASED
     Route: 048
     Dates: start: 20160705, end: 20160716
  2. ATENOLOL. [Concomitant]
     Active Substance: ATENOLOL
  3. DOCUSATE [Concomitant]
     Active Substance: DOCUSATE
  4. TRETINOIN. [Concomitant]
     Active Substance: TRETINOIN
  5. ALPRAZOLAM. [Concomitant]
     Active Substance: ALPRAZOLAM
  6. HYDROMORPHONE [Concomitant]
     Active Substance: HYDROMORPHONE
  7. ONDASETRON [Concomitant]
     Active Substance: ONDANSETRON
  8. WHEELCHAIR [Concomitant]
     Active Substance: DEVICE
  9. NASONEX [Concomitant]
     Active Substance: MOMETASONE FUROATE
  10. CANE [Concomitant]
  11. FENTANYL. [Concomitant]
     Active Substance: FENTANYL
  12. WALKER SEAT [Concomitant]
     Active Substance: DEVICE

REACTIONS (7)
  - Hypoaesthesia [None]
  - Pruritus [None]
  - Pain of skin [None]
  - Erythema [None]
  - Urticaria [None]
  - Skin exfoliation [None]
  - Scratch [None]

NARRATIVE: CASE EVENT DATE: 20160716
